FAERS Safety Report 15704765 (Version 1)
Quarter: 2018Q4

REPORT INFORMATION
  Report Type: Report from Study
  Country: IT (occurrence: IT)
  Receive Date: 20181210
  Receipt Date: 20181210
  Transmission Date: 20190205
  Serious: Yes (Hospitalization)
  Sender: FDA-Public Use
  Company Number: IT-PFIZER INC-2018503217

PATIENT
  Age: 76 Year
  Sex: Male

DRUGS (7)
  1. KCL-RETARD [Suspect]
     Active Substance: POTASSIUM CHLORIDE
     Dosage: 4 DF, TOTAL
     Route: 048
     Dates: start: 20181031, end: 20181031
  2. TORVAST [Concomitant]
     Active Substance: ATORVASTATIN
     Dosage: 4 DF, UNK
     Route: 048
     Dates: start: 20181031, end: 20181031
  3. TARGIN [Suspect]
     Active Substance: NALOXONE HYDROCHLORIDE\OXYCODONE HYDROCHLORIDE
     Dosage: 8 DF, TOTAL
     Route: 048
     Dates: start: 20181031, end: 20181031
  4. NORVASC [Suspect]
     Active Substance: AMLODIPINE BESYLATE
     Dosage: 4 DF, TOTAL
     Route: 048
     Dates: start: 20181031, end: 20181031
  5. CARDICOR [Suspect]
     Active Substance: BISOPROLOL
     Dosage: 4 DF, TOTAL
     Route: 048
     Dates: start: 20181031, end: 20181031
  6. ADENURIC [Suspect]
     Active Substance: FEBUXOSTAT
     Dosage: 4 DF, TOTAL
     Route: 048
     Dates: start: 20181031, end: 20181031
  7. FOLINA [CALCIUM FOLINATE] [Concomitant]
     Dosage: 4 DF, UNK
     Route: 048
     Dates: start: 20181031, end: 20181031

REACTIONS (6)
  - Acidosis [Recovered/Resolved]
  - Accidental overdose [Recovered/Resolved]
  - Confusional state [Recovered/Resolved]
  - Hypotension [Recovered/Resolved]
  - Hyperkalaemia [Recovered/Resolved]
  - Bradycardia [Recovered/Resolved]

NARRATIVE: CASE EVENT DATE: 20181031
